FAERS Safety Report 24769200 (Version 4)
Quarter: 2025Q1

REPORT INFORMATION
  Report Type: Report from Study
  Country: DE (occurrence: DE)
  Receive Date: 20241224
  Receipt Date: 20250220
  Transmission Date: 20250409
  Serious: Yes (Hospitalization)
  Sender: ROCHE
  Company Number: DE-ML39632-2390197-0

PATIENT
  Age: 52 Year
  Sex: Male

DRUGS (11)
  1. OCREVUS [Suspect]
     Active Substance: OCRELIZUMAB
     Indication: Primary progressive multiple sclerosis
     Route: 040
     Dates: start: 20200804, end: 20200818
  2. OCREVUS [Suspect]
     Active Substance: OCRELIZUMAB
     Route: 040
     Dates: start: 20210209
  3. Comirnaty [Concomitant]
     Indication: COVID-19 immunisation
     Route: 030
     Dates: start: 20210408, end: 20210408
  4. Comirnaty [Concomitant]
     Route: 030
     Dates: start: 20210520, end: 20210520
  5. Comirnaty [Concomitant]
     Route: 030
     Dates: start: 20211209, end: 20211209
  6. BACLOFEN [Concomitant]
     Active Substance: BACLOFEN
     Route: 048
     Dates: start: 20221025, end: 20221112
  7. ALFUZOSIN [Concomitant]
     Active Substance: ALFUZOSIN
     Indication: Neurogenic bladder
     Route: 048
     Dates: start: 201705, end: 202101
  8. ALFUZOSIN [Concomitant]
     Active Substance: ALFUZOSIN
     Route: 048
     Dates: start: 202101, end: 202112
  9. CHOLECALCIFEROL [Concomitant]
     Active Substance: CHOLECALCIFEROL
     Indication: Vitamin D deficiency
     Route: 048
     Dates: start: 20221025, end: 20221112
  10. BACLOFEN [Concomitant]
     Active Substance: BACLOFEN
     Indication: Infection
     Route: 048
     Dates: start: 20221025, end: 20221112
  11. POLYETHYLENE GLYCOL 1000 [Concomitant]
     Active Substance: POLYETHYLENE GLYCOL 1000

REACTIONS (1)
  - Infection [Unknown]

NARRATIVE: CASE EVENT DATE: 20241209
